FAERS Safety Report 20481341 (Version 2)
Quarter: 2022Q1

REPORT INFORMATION
  Report Type: Report from Study
  Country: MX (occurrence: MX)
  Receive Date: 20220216
  Receipt Date: 20220224
  Transmission Date: 20220423
  Serious: Yes (Hospitalization)
  Sender: FDA-Public Use
  Company Number: MX-TAKEDA-MX202011550

PATIENT
  Age: 9 Year
  Sex: Male
  Weight: 26 kg

DRUGS (7)
  1. IDURSULFASE [Suspect]
     Active Substance: IDURSULFASE
     Indication: Mucopolysaccharidosis II
     Dosage: UNK
     Route: 065
  2. IDURSULFASE [Suspect]
     Active Substance: IDURSULFASE
     Dosage: UNK UNK, QD
     Route: 042
     Dates: start: 201710
  3. IDURSULFASE [Suspect]
     Active Substance: IDURSULFASE
     Dosage: 2 DOSAGE FORM
     Route: 042
     Dates: start: 201710
  4. IDURSULFASE [Suspect]
     Active Substance: IDURSULFASE
     Dosage: UNK
     Route: 065
     Dates: start: 20200317
  5. ENALAPRIL [Concomitant]
     Active Substance: ENALAPRIL
     Indication: Mucopolysaccharidosis II
     Dosage: 20MG, WITH 24 HOURS
     Route: 065
     Dates: start: 201710
  6. FUROSEMIDE [Concomitant]
     Active Substance: FUROSEMIDE
     Indication: Mucopolysaccharidosis II
     Dosage: 40MG,TABLET,1/5, WITH 24 HOURS
     Route: 065
     Dates: start: 201710
  7. SPIRONOLACTONE [Concomitant]
     Active Substance: SPIRONOLACTONE
     Indication: Mucopolysaccharidosis II
     Dosage: 25MILLIGRAM,TABLET 1, WITH 24 HOURS
     Route: 065
     Dates: start: 201710

REACTIONS (7)
  - Animal bite [Recovered/Resolved]
  - Pain in extremity [Recovered/Resolved]
  - Pyrexia [Recovered/Resolved]
  - Therapy interrupted [Not Recovered/Not Resolved]
  - Inappropriate schedule of product administration [Not Recovered/Not Resolved]
  - Product dose omission issue [Not Recovered/Not Resolved]
  - Product availability issue [Not Recovered/Not Resolved]

NARRATIVE: CASE EVENT DATE: 20200323
